FAERS Safety Report 25852865 (Version 1)
Quarter: 2025Q3

REPORT INFORMATION
  Report Type: Report from Study
  Country: CA (occurrence: CA)
  Receive Date: 20250926
  Receipt Date: 20250926
  Transmission Date: 20251021
  Serious: Yes (Other)
  Sender: PFIZER
  Company Number: CA-PFIZER INC-202500190602

PATIENT
  Age: 36 Year
  Sex: Female

DRUGS (5)
  1. RITUXIMAB [Suspect]
     Active Substance: RITUXIMAB
     Indication: Neuromyelitis optica spectrum disorder
     Route: 042
  2. RITUXIMAB [Suspect]
     Active Substance: RITUXIMAB
     Route: 042
  3. CALCIUM [Concomitant]
     Active Substance: CALCIUM
  4. CARBAMAZEPINE [Concomitant]
     Active Substance: CARBAMAZEPINE
     Indication: Neuralgia
  5. CHOLECALCIFEROL [Concomitant]
     Active Substance: CHOLECALCIFEROL

REACTIONS (8)
  - Blindness unilateral [Recovered/Resolved]
  - Emotional distress [Recovered/Resolved]
  - Fear of disease [Recovered/Resolved]
  - Groin abscess [Recovered/Resolved]
  - Hypogammaglobulinaemia [Recovered/Resolved]
  - Skin infection [Recovered/Resolved]
  - Vaginal infection [Recovered/Resolved]
  - Weight decreased [Recovered/Resolved]
